FAERS Safety Report 6776075-1 (Version None)
Quarter: 2010Q2

REPORT INFORMATION
  Report Type: 
  Country: None (occurrence: None)
  Receive Date: 20100615
  Receipt Date: 20100602
  Transmission Date: 20101027
  Serious: Yes (Disabling)
  Sender: FDA-Public Use
  Company Number: 7006950

PATIENT
  Age: 42 Year
  Sex: Female
  Weight: 104 kg

DRUGS (1)
  1. REBIF [Suspect]
     Indication: MULTIPLE SCLEROSIS
     Dosage: 44 MCG, 3 IN 1 WK, SUBCUTANEOUS
     Route: 058
     Dates: start: 20100130

REACTIONS (9)
  - ABASIA [None]
  - AGITATION [None]
  - BACK PAIN [None]
  - FEAR [None]
  - INJECTION SITE HAEMATOMA [None]
  - INSOMNIA [None]
  - MUSCLE SPASMS [None]
  - MUSCULOSKELETAL CHEST PAIN [None]
  - PARAESTHESIA [None]
